FAERS Safety Report 23660696 (Version 1)
Quarter: 2024Q1

REPORT INFORMATION
  Report Type: Spontaneous
  Country: GB (occurrence: GB)
  Receive Date: 20240322
  Receipt Date: 20240322
  Transmission Date: 20240410
  Serious: Yes (Disabling, Other)
  Sender: FDA-Public Use
  Company Number: None

PATIENT
  Sex: Male

DRUGS (1)
  1. ARIPIPRAZOLE [Suspect]
     Active Substance: ARIPIPRAZOLE
     Indication: Product used for unknown indication
     Dosage: UNK
     Route: 065

REACTIONS (15)
  - Excessive masturbation [Unknown]
  - Food craving [Unknown]
  - Drug dependence [Unknown]
  - Tobacco user [Unknown]
  - Respiration abnormal [Unknown]
  - Nervousness [Unknown]
  - Nervous system disorder [Unknown]
  - Anger [Unknown]
  - Dysarthria [Unknown]
  - Stereotypy [Unknown]
  - Psychotic disorder [Unknown]
  - Constipation [Unknown]
  - Asthenia [Unknown]
  - Speech disorder [Unknown]
  - Memory impairment [Unknown]
